FAERS Safety Report 7816672-5 (Version None)
Quarter: 2011Q4

REPORT INFORMATION
  Report Type: 
  Country: None (occurrence: None)
  Receive Date: 20111017
  Receipt Date: 20111016
  Transmission Date: 20120403
  Serious: Yes (Other)
  Sender: FDA-Public Use
  Company Number: US-PFIZER INC-2011247049

PATIENT
  Sex: Male
  Weight: 58.957 kg

DRUGS (6)
  1. COREG [Concomitant]
     Indication: HYPERTENSION
     Dosage: 2.5 MG, UNK
  2. LEVOTHYROXINE [Concomitant]
     Indication: HYPOTHYROIDISM
     Dosage: UNK
  3. LIPITOR [Concomitant]
     Indication: BLOOD CHOLESTEROL INCREASED
     Dosage: UNK
  4. XANAX [Suspect]
     Indication: PANIC ATTACK
     Dosage: 0.5 MG, AS NEEDED
     Route: 048
     Dates: start: 20050101, end: 20111013
  5. PRISTIQ [Suspect]
     Indication: PANIC ATTACK
     Dosage: 50 MG, 1X/DAY
     Route: 048
     Dates: start: 20111013
  6. ASPIRIN [Concomitant]
     Dosage: UNK

REACTIONS (5)
  - JOINT STIFFNESS [None]
  - HOT FLUSH [None]
  - PANIC ATTACK [None]
  - DIZZINESS [None]
  - INSOMNIA [None]
